FAERS Safety Report 14268537 (Version 1)
Quarter: 2017Q4

REPORT INFORMATION
  Report Type: Spontaneous
  Country: FR (occurrence: FR)
  Receive Date: 20171211
  Receipt Date: 20171211
  Transmission Date: 20180321
  Serious: Yes (Hospitalization, Congenital Anomaly)
  Sender: FDA-Public Use
  Company Number: FR-BAYER-2017-234825

PATIENT
  Age: 17 Day
  Sex: Female
  Weight: 3.4 kg

DRUGS (1)
  1. ASPIRIN PROTECT [Suspect]
     Active Substance: ASPIRIN
     Route: 064

REACTIONS (4)
  - Foetal exposure during pregnancy [None]
  - Infantile haemangioma [Recovered/Resolved]
  - Skin necrosis [None]
  - Gastrointestinal stoma complication [None]
